FAERS Safety Report 6317767-8 (Version None)
Quarter: 2009Q3

REPORT INFORMATION
  Report Type: 
  Country: None (occurrence: None)
  Receive Date: 20090821
  Receipt Date: 20090810
  Transmission Date: 20100115
  Serious: Yes (Other)
  Sender: FDA-Public Use
  Company Number: GB-PFIZER INC-2009226735

PATIENT
  Age: 62 Year

DRUGS (6)
  1. CHAMPIX [Suspect]
     Dosage: 0.5 MG, 2X/DAY
     Route: 048
     Dates: start: 20090620, end: 20090626
  2. SIMVASTATIN [Concomitant]
     Indication: BLOOD CHOLESTEROL
     Dosage: 20 MG, UNK
     Route: 048
     Dates: start: 20051123
  3. SALBUTAMOL [Concomitant]
     Indication: ASTHMA
     Dosage: 2 DF, AS NEEDED
     Route: 055
  4. BECLOMETASONE [Concomitant]
     Indication: ASTHMA
     Dosage: 100 UG, 2X/DAY
     Route: 055
  5. OILATUM 1 [Concomitant]
     Indication: ECZEMA
     Dosage: UNK
     Route: 061
  6. UNGUENTUM MERCK [Concomitant]
     Indication: ECZEMA

REACTIONS (3)
  - DEPRESSION [None]
  - PERSONALITY CHANGE [None]
  - SUICIDAL IDEATION [None]
